FAERS Safety Report 5081540-1 (Version None)
Quarter: 2006Q3

REPORT INFORMATION
  Report Type: 
  Country: None (occurrence: None)
  Receive Date: 20060811
  Receipt Date: 20060727
  Transmission Date: 20061208
  Serious: Yes (Hospitalization)
  Sender: FDA-Public Use
  Company Number: DEU-2006-0002398

PATIENT
  Age: 48 Year
  Sex: Male

DRUGS (2)
  1. HYDROMORPHONE HCL [Suspect]
     Indication: BACK PAIN
     Dosage: SEE TEXT, INTRATHECAL
     Route: 037
  2. BUPIVACAINE [Suspect]
     Indication: BACK PAIN
     Dosage: SEE TEXT, INTRATHECAL
     Route: 037

REACTIONS (2)
  - INJECTION SITE MASS [None]
  - MUSCULAR WEAKNESS [None]
